FAERS Safety Report 8858964 (Version 2)
Quarter: 2013Q2

REPORT INFORMATION
  Report Type: Spontaneous
  Country: US (occurrence: None)
  Receive Date: 20120426
  Receipt Date: 20120703
  Transmission Date: 20140414
  Serious: No
  Sender: FDA-Public Use
  Company Number: PHEH2012US003479

PATIENT
  Age: 46 Year
  Sex: Female
  Weight: 65.8 kg

DRUGS (2)
  1. GILENYA [Suspect]
     Indication: MULTIPLE SCLEROSIS
     Route: 048
     Dates: start: 20120201
  2. EFFEXOR (VENLAFAXINE HYDROCHLORIDE) UNKNOWN [Concomitant]

REACTIONS (5)
  - Fatigue [None]
  - Abnormal dreams [None]
  - Abdominal discomfort [None]
  - Influenza like illness [None]
  - Headache [None]
